APPROVED DRUG PRODUCT: MERCAPTOPURINE
Active Ingredient: MERCAPTOPURINE
Strength: 50MG
Dosage Form/Route: TABLET;ORAL
Application: A040528 | Product #001 | TE Code: AB
Applicant: HIKMA PHARMACEUTICALS USA INC
Approved: Feb 13, 2004 | RLD: No | RS: Yes | Type: RX